FAERS Safety Report 9832099 (Version 1)
Quarter: 2014Q1

REPORT INFORMATION
  Report Type: Spontaneous
  Country: FR (occurrence: FR)
  Receive Date: 20140121
  Receipt Date: 20140121
  Transmission Date: 20141002
  Serious: Yes (Other)
  Sender: FDA-Public Use
  Company Number: FR-ASTRAZENECA-2014SE03266

PATIENT
  Age: 594 Month
  Sex: Male

DRUGS (1)
  1. INEXIUM [Suspect]
     Indication: BARRETT^S OESOPHAGUS
     Route: 048
     Dates: start: 201309

REACTIONS (1)
  - Blood creatine phosphokinase increased [Recovering/Resolving]
